FAERS Safety Report 4331446-8 (Version None)
Quarter: 2004Q1

REPORT INFORMATION
  Report Type: 
  Country: None (occurrence: None)
  Receive Date: 20040329
  Receipt Date: 20040316
  Transmission Date: 20041129
  Serious: Yes (Hospitalization)
  Sender: FDA-Public Use
  Company Number: USA-2004-0013919

PATIENT
  Age: 16 Month
  Sex: 0

DRUGS (1)
  1. MORPHINE SULFATE [Suspect]

REACTIONS (4)
  - ACCIDENTAL OVERDOSE [None]
  - HYPOXIA [None]
  - MEDICATION ERROR [None]
  - RESPIRATORY DEPRESSION [None]
